FAERS Safety Report 24899564 (Version 1)
Quarter: 2025Q1

REPORT INFORMATION
  Report Type: Spontaneous
  Country: US (occurrence: US)
  Receive Date: 20250129
  Receipt Date: 20250129
  Transmission Date: 20250409
  Serious: Yes (Hospitalization, Other)
  Sender: PFIZER
  Company Number: US-PFIZER INC-202500018244

PATIENT
  Age: 76 Year
  Sex: Male

DRUGS (2)
  1. ELREXFIO [Suspect]
     Active Substance: ELRANATAMAB-BCMM
  2. ELREXFIO [Suspect]
     Active Substance: ELRANATAMAB-BCMM

REACTIONS (3)
  - Immune effector cell-associated neurotoxicity syndrome [Not Recovered/Not Resolved]
  - Disorientation [Not Recovered/Not Resolved]
  - Rash erythematous [Not Recovered/Not Resolved]
